FAERS Safety Report 7482222-9 (Version None)
Quarter: 2011Q2

REPORT INFORMATION
  Report Type: 
  Country: None (occurrence: None)
  Receive Date: 20110516
  Receipt Date: 20110505
  Transmission Date: 20111010
  Serious: No
  Sender: FDA-Public Use
  Company Number: US-PFIZER INC-2011097705

PATIENT
  Sex: Male
  Weight: 28.571 kg

DRUGS (2)
  1. GENOTROPIN [Suspect]
  2. ZYRTEC [Concomitant]
     Dosage: 1 MG/ML, UNK

REACTIONS (1)
  - PAIN IN EXTREMITY [None]
